FAERS Safety Report 8463349-1 (Version None)
Quarter: 2012Q2

REPORT INFORMATION
  Report Type: 
  Country: None (occurrence: None)
  Receive Date: 20120620
  Receipt Date: 20120604
  Transmission Date: 20120825
  Serious: Yes (Other)
  Sender: FDA-Public Use
  Company Number: COL_11763_2012

PATIENT
  Sex: Female

DRUGS (1)
  1. COLGATE CAVITY PROTECTION GREATREGULAR FLAVOR TOOTHPASTE [Suspect]
     Indication: DENTAL CARIES
     Dosage: / ORAL)

REACTIONS (1)
  - SWOLLEN TONGUE [None]
